FAERS Safety Report 5031354-3 (Version None)
Quarter: 2006Q2

REPORT INFORMATION
  Report Type: 
  Country: None (occurrence: None)
  Receive Date: 20060615
  Receipt Date: 20060608
  Transmission Date: 20061013
  Serious: Yes (Other)
  Sender: FDA-Public Use
  Company Number: 2006-05-2235

PATIENT
  Age: 30 Year
  Sex: Female
  Weight: 70 kg

DRUGS (1)
  1. ELOCON [Suspect]
     Indication: DERMATITIS ALLERGIC
     Dosage: 15G QD TOP-DERM
     Route: 061
     Dates: start: 20060525, end: 20060525

REACTIONS (3)
  - CONDITION AGGRAVATED [None]
  - HYPERSENSITIVITY [None]
  - PRURITUS [None]
